FAERS Safety Report 21017913 (Version 2)
Quarter: 2022Q3

REPORT INFORMATION
  Report Type: Spontaneous
  Country: CN (occurrence: CN)
  Receive Date: 20220628
  Receipt Date: 20220711
  Transmission Date: 20221027
  Serious: Yes (Other)
  Sender: FDA-Public Use
  Company Number: CN-MLMSERVICE-20220617-3622784-1

PATIENT
  Age: 62 Year
  Sex: Female
  Weight: 46 kg

DRUGS (3)
  1. CYCLOPHOSPHAMIDE [Suspect]
     Active Substance: CYCLOPHOSPHAMIDE
     Dosage: 0.8 G, 4 CYCLICAL, 21 DAYS
     Route: 041
  2. PACLITAXEL [Suspect]
     Active Substance: PACLITAXEL
     Dosage: 400 MG, 4 CYCLICAL, CSPC PHARMACEUTICAL GROUP LIMITED
     Route: 041
  3. DOXORUBICIN HYDROCHLORIDE [Suspect]
     Active Substance: DOXORUBICIN HYDROCHLORIDE
     Indication: Breast cancer metastatic
     Dosage: 50 G, 4 CYCLICAL, CSPC PHARMACEUTICAL GROUP LIMITED
     Route: 041

REACTIONS (9)
  - Oesophageal stenosis [Recovering/Resolving]
  - Dysphagia [Recovering/Resolving]
  - Oesophageal ulcer [Unknown]
  - Oesophageal injury [Unknown]
  - Necrotising oesophagitis [Unknown]
  - Skin exfoliation [Unknown]
  - Malnutrition [Unknown]
  - Pigmentation disorder [Unknown]
  - Alopecia [Unknown]
